FAERS Safety Report 14967066 (Version 1)
Quarter: 2018Q2

REPORT INFORMATION
  Report Type: Spontaneous
  Country: RU (occurrence: RU)
  Receive Date: 20180604
  Receipt Date: 20180604
  Transmission Date: 20180711
  Serious: Yes (Hospitalization)
  Sender: FDA-Public Use
  Company Number: RU-CHEPLA-C20170434_C

PATIENT
  Age: 15 Year
  Sex: Female

DRUGS (1)
  1. VESANOID [Suspect]
     Active Substance: TRETINOIN
     Route: 048

REACTIONS (2)
  - Drug ineffective [Unknown]
  - Disease progression [Unknown]

NARRATIVE: CASE EVENT DATE: 20170609
